FAERS Safety Report 9293034 (Version 1)
Quarter: 2013Q2

REPORT INFORMATION
  Report Type: Spontaneous
  Country: US (occurrence: None)
  Receive Date: 20130515
  Receipt Date: 20130515
  Transmission Date: 20140414
  Serious: Yes (Life-Threatening)
  Sender: FDA-Public Use
  Company Number: None

PATIENT
  Age: 78 Year
  Sex: Male
  Weight: 97.07 kg

DRUGS (1)
  1. PRADAXA 150MG BOEHRINGER INGELHEIM [Suspect]
     Dosage: 203486- LOT #

REACTIONS (3)
  - Cough [None]
  - Pneumonia [None]
  - Pulmonary oedema [None]
